FAERS Safety Report 8345947-9 (Version None)
Quarter: 2012Q2

REPORT INFORMATION
  Report Type: 
  Country: None (occurrence: None)
  Receive Date: 20120507
  Receipt Date: 20120425
  Transmission Date: 20120825
  Serious: Yes (Other)
  Sender: FDA-Public Use
  Company Number: 2012SP021988

PATIENT
  Age: 65 Year
  Sex: Male
  Weight: 52 kg

DRUGS (11)
  1. CLARITIN [Concomitant]
  2. MAGMITT [Concomitant]
  3. REBETOL [Suspect]
     Indication: HEPATITIS C
     Dosage: 600 MG; QD; PO, 200 MG; QD; PO
     Route: 048
     Dates: start: 20120229, end: 20120411
  4. REBETOL [Suspect]
     Indication: HEPATITIS C
     Dosage: 600 MG; QD; PO, 200 MG; QD; PO
     Route: 048
     Dates: start: 20120412
  5. ACYCLOVIR [Concomitant]
  6. ALLEGRA [Concomitant]
  7. PEGINTERFERON ALFA-2B [Suspect]
     Indication: HEPATITIS C
     Dosage: 1.5 MCG/KG; QW; SC
     Route: 058
     Dates: start: 20120229
  8. TELAVIC (ANTIVIRALS NOS) [Suspect]
     Indication: HEPATITIS C
     Dosage: 2250 MG; QD; PO, 1500 MG; QD; PO
     Route: 048
     Dates: start: 20120229, end: 20120328
  9. TELAVIC (ANTIVIRALS NOS) [Suspect]
     Indication: HEPATITIS C
     Dosage: 2250 MG; QD; PO, 1500 MG; QD; PO
     Route: 048
     Dates: start: 20120329
  10. ALLOPURINOL [Concomitant]
  11. MYSER /00115501/) [Concomitant]

REACTIONS (7)
  - ECZEMA [None]
  - RASH [None]
  - HYPERURICAEMIA [None]
  - HERPES ZOSTER [None]
  - DECREASED APPETITE [None]
  - MALAISE [None]
  - CONSTIPATION [None]
